FAERS Safety Report 5312218-4 (Version None)
Quarter: 2007Q2

REPORT INFORMATION
  Report Type: 
  Country: None (occurrence: None)
  Receive Date: 20070430
  Receipt Date: 20060912
  Transmission Date: 20071010
  Serious: No
  Sender: FDA-Public Use
  Company Number: 2006UW16157

PATIENT
  Age: 80 Year
  Sex: Male
  Weight: 74.8 kg

DRUGS (9)
  1. NEXIUM [Suspect]
     Indication: OESOPHAGEAL DISCOMFORT
     Route: 048
     Dates: start: 20060809
  2. NEXIUM [Suspect]
     Indication: DYSPEPSIA
     Route: 048
     Dates: start: 20060809
  3. NEXIUM [Suspect]
     Indication: GASTROOESOPHAGEAL REFLUX DISEASE
     Route: 048
     Dates: start: 20060809
  4. LIBRAX [Suspect]
  5. BACTRIM [Concomitant]
  6. SULFAMETHOXAZOLE [Concomitant]
  7. ANUSOL HC [Concomitant]
  8. TUMS [Concomitant]
  9. ALKA-SELTZER [Concomitant]

REACTIONS (7)
  - ABDOMINAL PAIN [None]
  - CHEST PAIN [None]
  - DYSPEPSIA [None]
  - DYSPHONIA [None]
  - DYSPNOEA [None]
  - DYSURIA [None]
  - STOMACH DISCOMFORT [None]
